FAERS Safety Report 9860847 (Version 2)
Quarter: 2014Q1

REPORT INFORMATION
  Report Type: Spontaneous
  Country: US (occurrence: US)
  Receive Date: 20140202
  Receipt Date: 20140202
  Transmission Date: 20141002
  Serious: No
  Sender: FDA-Public Use
  Company Number: US-ALLERGAN-1302043US

PATIENT
  Age: 43 Year
  Sex: Female

DRUGS (2)
  1. BOTOX [Suspect]
     Indication: MIGRAINE
     Dosage: 155 UNITS, SINGLE
     Route: 030
     Dates: start: 20130125, end: 20130125
  2. RELPAX [Concomitant]
     Indication: MIGRAINE
     Dosage: 40 MG, PRN
     Route: 048

REACTIONS (6)
  - Skin lesion [Unknown]
  - Skin lesion [Unknown]
  - Skin warm [Unknown]
  - Pruritus [Unknown]
  - Pruritus [Unknown]
  - Erythema [Unknown]
